FAERS Safety Report 19089520 (Version 2)
Quarter: 2021Q2

REPORT INFORMATION
  Report Type: Spontaneous
  Country: US (occurrence: US)
  Receive Date: 20210403
  Receipt Date: 20210416
  Transmission Date: 20210717
  Serious: No
  Sender: FDA-Public Use
  Company Number: US-TAKEDA-2021TUS020635

PATIENT
  Sex: Female

DRUGS (2)
  1. BRIGATINIB [Suspect]
     Active Substance: BRIGATINIB
     Indication: ACOUSTIC NEUROMA
     Dosage: 180 MILLIGRAM, QD
     Route: 048
  2. BRIGATINIB [Suspect]
     Active Substance: BRIGATINIB
     Indication: NEUROFIBROMATOSIS
     Dosage: 90 MILLIGRAM
     Route: 048

REACTIONS (3)
  - Diarrhoea [Recovering/Resolving]
  - Mouth ulceration [Recovering/Resolving]
  - Off label use [Unknown]
